FAERS Safety Report 5489561-1 (Version None)
Quarter: 2007Q4

REPORT INFORMATION
  Report Type: 
  Country: None (occurrence: None)
  Receive Date: 20071016
  Receipt Date: 20071016
  Transmission Date: 20080405
  Serious: Yes (Life-Threatening, Other)
  Sender: FDA-Public Use
  Company Number: None

PATIENT
  Age: 50 Year
  Weight: 93.9 kg

DRUGS (2)
  1. HUMATE-P [Suspect]
     Indication: VON WILLEBRAND'S DISEASE
     Dosage: 5802 RCO UNITS WEEKLY IV BOLUS
     Route: 040
     Dates: start: 20070719, end: 20071011
  2. HUMATE-P [Suspect]

REACTIONS (3)
  - HYPOTENSION [None]
  - PRURITUS [None]
  - URTICARIA [None]
